FAERS Safety Report 5854397-6 (Version None)
Quarter: 2008Q3

REPORT INFORMATION
  Report Type: 
  Country: None (occurrence: None)
  Receive Date: 20080822
  Receipt Date: 20080819
  Transmission Date: 20090109
  Serious: No
  Sender: FDA-Public Use
  Company Number: US-BOEHRINGER INGELHEIM GMBH, GERMANY-2008-BP-10210BP

PATIENT
  Age: 59 Year
  Sex: Female
  Weight: 78 kg

DRUGS (6)
  1. SPIRIVA [Suspect]
     Indication: CHRONIC OBSTRUCTIVE PULMONARY DISEASE
     Route: 055
     Dates: start: 20080201, end: 20080601
  2. PRAVACHOL [Concomitant]
  3. TRICOR [Concomitant]
  4. ALBUTEROL [Concomitant]
  5. FLOVENT HFA [Concomitant]
  6. COMBIVENT [Concomitant]

REACTIONS (1)
  - VISION BLURRED [None]
